FAERS Safety Report 4318808-X (Version None)
Quarter: 2004Q1

REPORT INFORMATION
  Report Type: 
  Country: None (occurrence: None)
  Receive Date: 20040318
  Receipt Date: 20040311
  Transmission Date: 20041129
  Serious: Yes (Death)
  Sender: FDA-Public Use
  Company Number: FR-GLAXOSMITHKLINE-B0326387A

PATIENT
  Age: 73 Year
  Sex: Male
  Weight: 91 kg

DRUGS (13)
  1. AUGMENTIN [Suspect]
     Dosage: 1G THREE TIMES PER DAY
     Route: 042
     Dates: start: 20040226, end: 20040228
  2. ROCEPHIN [Concomitant]
     Dosage: 1G PER DAY
     Route: 042
     Dates: start: 20040228, end: 20040229
  3. TAHOR [Concomitant]
     Dosage: 10MG PER DAY
     Route: 048
  4. ALDACTAZINE [Concomitant]
     Route: 048
     Dates: start: 20040226, end: 20040303
  5. COZAAR [Concomitant]
     Route: 048
     Dates: start: 20040226, end: 20040303
  6. ASPIRIN [Concomitant]
     Route: 048
     Dates: start: 20040226, end: 20040303
  7. TAVANIC [Concomitant]
     Dosage: 500MG THREE TIMES PER DAY
     Dates: start: 20040229
  8. TIBERAL [Concomitant]
     Dosage: 500MG PER DAY
     Dates: start: 20040229
  9. INSULIN [Concomitant]
     Route: 042
     Dates: start: 20040226
  10. EUPRESSYL [Concomitant]
     Dosage: 60MG TWICE PER DAY
     Route: 048
  11. ALPRESS [Concomitant]
     Dosage: 5MG TWICE PER DAY
  12. AMLOR [Concomitant]
     Dosage: 5MG TWICE PER DAY
  13. KALEORID [Concomitant]
     Dosage: 1G TWICE PER DAY

REACTIONS (13)
  - ACUTE GENERALISED EXANTHEMATOUS PUSTULOSIS [None]
  - BRONCHOPNEUMONIA [None]
  - DEATH [None]
  - EXTRAPYRAMIDAL DISORDER [None]
  - HEMIPLEGIA [None]
  - HYPERURICAEMIA [None]
  - HYPOTENSION [None]
  - INFLAMMATION [None]
  - LEUKOCYTOSIS [None]
  - PURPURA [None]
  - PYREXIA [None]
  - RASH PUSTULAR [None]
  - RESPIRATORY DISORDER [None]
